FAERS Safety Report 6702745-7 (Version None)
Quarter: 2010Q2

REPORT INFORMATION
  Report Type: 
  Country: None (occurrence: None)
  Receive Date: 20100429
  Receipt Date: 20100414
  Transmission Date: 20101027
  Serious: Yes (Other)
  Sender: FDA-Public Use
  Company Number: GB-CUBIST-2010S1000163

PATIENT
  Age: 71 Year
  Sex: Male
  Weight: 118 kg

DRUGS (9)
  1. CUBICIN [Suspect]
     Indication: CELLULITIS
     Route: 042
     Dates: start: 20100312
  2. CUBICIN [Suspect]
     Indication: SKIN INFECTION
     Route: 042
     Dates: start: 20100312
  3. CUBICIN [Suspect]
     Route: 042
     Dates: start: 20100312
  4. CUBICIN [Suspect]
     Route: 042
     Dates: start: 20100312
  5. FUROSEMIDE [Concomitant]
     Indication: DRUG USE FOR UNKNOWN INDICATION
     Dates: start: 20100312
  6. FELODIPINE [Concomitant]
     Indication: DRUG USE FOR UNKNOWN INDICATION
     Dates: start: 20100312
  7. DRUG USED IN DIABETES [Concomitant]
     Indication: DRUG USE FOR UNKNOWN INDICATION
     Dates: start: 20100312
  8. ATENOLOL [Concomitant]
     Indication: DRUG USE FOR UNKNOWN INDICATION
     Dates: start: 20100312
  9. LOVASTATIN [Concomitant]
     Indication: DRUG USE FOR UNKNOWN INDICATION
     Dates: start: 20100312

REACTIONS (1)
  - ACUTE MYOCARDIAL INFARCTION [None]
